FAERS Safety Report 14619512 (Version 1)
Quarter: 2018Q1

REPORT INFORMATION
  Report Type: Spontaneous
  Country: CA (occurrence: CA)
  Receive Date: 20180309
  Receipt Date: 20180309
  Transmission Date: 20180509
  Serious: Yes (Other)
  Sender: FDA-Public Use
  Company Number: CA-ASTRAZENECA-2018SE28105

PATIENT
  Age: 71 Year
  Sex: Female

DRUGS (3)
  1. FORXIGA [Suspect]
     Active Substance: DAPAGLIFLOZIN
     Indication: TYPE 2 DIABETES MELLITUS
     Dosage: ??? 10 MG TABLET
     Route: 048
     Dates: start: 20180227, end: 20180228
  2. LOSEC [Concomitant]
     Active Substance: OMEPRAZOLE
     Route: 048
     Dates: start: 20151112
  3. D-TAB [Concomitant]
     Dosage: 10000 IU
     Dates: start: 20151112

REACTIONS (5)
  - Erythema [Recovered/Resolved]
  - Feeling hot [Unknown]
  - Tremor [Unknown]
  - Pruritus [Unknown]
  - Malaise [Unknown]

NARRATIVE: CASE EVENT DATE: 20180227
